FAERS Safety Report 6542064-5 (Version None)
Quarter: 2010Q1

REPORT INFORMATION
  Report Type: 
  Country: None (occurrence: None)
  Receive Date: 20100119
  Receipt Date: 20100111
  Transmission Date: 20100710
  Serious: Yes (Hospitalization)
  Sender: FDA-Public Use
  Company Number: FR-ELI_LILLY_AND_COMPANY-FR200912005603

PATIENT
  Age: 65 Year
  Sex: Female
  Weight: 49 kg

DRUGS (5)
  1. FORTEO [Suspect]
     Indication: OSTEOPOROTIC FRACTURE
  2. SERESTA [Concomitant]
     Indication: DEPRESSION
     Dosage: 50 MG, 3/D
  3. MEPRONIZINE [Concomitant]
     Indication: DEPRESSION
     Dosage: 1 D/F, DAILY (1/D)
     Route: 048
  4. PROZAC [Concomitant]
     Indication: DEPRESSION
     Dosage: 20 MG, DAILY (1/D)
     Route: 048
  5. DAFALGAN [Concomitant]
     Dosage: 500 MG, 6 TIMES DAILY
     Route: 048

REACTIONS (3)
  - FALL [None]
  - FEMUR FRACTURE [None]
  - HUMERUS FRACTURE [None]
